FAERS Safety Report 4426656-5 (Version None)
Quarter: 2004Q3

REPORT INFORMATION
  Report Type: 
  Country: None (occurrence: None)
  Receive Date: 20040816
  Receipt Date: 20030711
  Transmission Date: 20050211
  Serious: Yes (Hospitalization)
  Sender: FDA-Public Use
  Company Number: PHHO2003GB08821

PATIENT
  Age: 48 Year
  Sex: Female
  Weight: 53 kg

DRUGS (1)
  1. TEGASEROD VS PLACEBO [Suspect]
     Indication: IRRITABLE BOWEL SYNDROME
     Dosage: 6 MG, BID
     Route: 048
     Dates: start: 20030610, end: 20030711

REACTIONS (6)
  - BIOPSY KIDNEY [None]
  - HAEMATURIA [None]
  - NAUSEA [None]
  - NEPHRITIS [None]
  - PAIN [None]
  - POST PROCEDURAL COMPLICATION [None]
